FAERS Safety Report 15829430 (Version 1)
Quarter: 2019Q1

REPORT INFORMATION
  Report Type: Spontaneous
  Country: US (occurrence: US)
  Receive Date: 20190115
  Receipt Date: 20190115
  Transmission Date: 20190417
  Serious: No
  Sender: FDA-Public Use
  Company Number: US-ALLERGAN-1843354US

PATIENT
  Age: 84 Year
  Sex: Female

DRUGS (5)
  1. KEPPRA [Concomitant]
     Active Substance: LEVETIRACETAM
     Indication: SEIZURE
     Dosage: UNKNOWN
     Route: 065
  2. EYE DROPS (UNSPECIFIED) [Concomitant]
     Indication: DRY EYE
     Dosage: UNKNOWN
     Route: 047
  3. BABY ASPIRIN [Concomitant]
     Active Substance: ASPIRIN
     Indication: MIGRAINE
     Dosage: 81 MG, PRN
     Route: 048
  4. RESTASIS [Suspect]
     Active Substance: CYCLOSPORINE
     Indication: DRY EYE
     Dosage: 2 GTT, QD 2-3 TIMES WEEKLY
     Route: 047
     Dates: start: 20180612
  5. ALLERGY EYE DROPS (UNSPECIFIED) [Concomitant]
     Indication: OCULAR HYPERAEMIA
     Dosage: UNKNOWN
     Route: 065

REACTIONS (2)
  - Product dose omission [Unknown]
  - Product container issue [Unknown]

NARRATIVE: CASE EVENT DATE: 20180612
